FAERS Safety Report 5534249-1 (Version None)
Quarter: 2007Q4

REPORT INFORMATION
  Report Type: 
  Country: None (occurrence: None)
  Receive Date: 20071120
  Receipt Date: 20071002
  Transmission Date: 20080405
  Serious: No
  Sender: FDA-Public Use
  Company Number: WAES 0710USA00715

PATIENT
  Age: 56 Year
  Sex: Male

DRUGS (7)
  1. JANUVIA [Suspect]
     Indication: TYPE 2 DIABETES MELLITUS
     Dosage: 100 MG/DAILY/PO
     Route: 048
     Dates: start: 20061001
  2. ALTACE [Concomitant]
  3. FLOMAX [Concomitant]
  4. GLUCOPHAGE XR [Concomitant]
  5. LASIX [Concomitant]
  6. PAXIL CR [Concomitant]
  7. XANAX [Concomitant]

REACTIONS (1)
  - WEIGHT INCREASED [None]
